FAERS Safety Report 21141460 (Version 1)
Quarter: 2022Q3

REPORT INFORMATION
  Report Type: Spontaneous
  Country: US (occurrence: None)
  Receive Date: 20220727
  Receipt Date: 20220727
  Transmission Date: 20221026
  Serious: No
  Sender: FDA-Public Use
  Company Number: None

PATIENT
  Age: 50 Year
  Sex: Female

DRUGS (1)
  1. PEGASYS [Suspect]
     Active Substance: PEGINTERFERON ALFA-2A
     Dosage: OTHER STRENGTH : 180/0.5 UG/ML;?
     Route: 058
     Dates: start: 202104, end: 202206

REACTIONS (2)
  - Rheumatoid arthritis [None]
  - Therapy cessation [None]

NARRATIVE: CASE EVENT DATE: 20220516
